FAERS Safety Report 4312073-5 (Version None)
Quarter: 2004Q1

REPORT INFORMATION
  Report Type: 
  Country: None (occurrence: None)
  Receive Date: 20040303
  Receipt Date: 20040213
  Transmission Date: 20041129
  Serious: Yes (Hospitalization)
  Sender: FDA-Public Use
  Company Number: RB-510-2004

PATIENT
  Age: 22 Year
  Sex: Female

DRUGS (3)
  1. BUPRENORPHINE HYDROCHLORIDE [Suspect]
     Indication: DRUG ABUSER
     Dosage: SL
     Route: 060
     Dates: start: 19980304, end: 19981011
  2. CLORAZEPATE DIPOTASSIUM [Suspect]
     Dosage: PO
     Route: 048
  3. ZOLPIDEM TARTRATE [Suspect]
     Dosage: PO
     Route: 048

REACTIONS (3)
  - COMPLICATIONS OF MATERNAL EXPOSURE TO THERAPEUTIC DRUGS [None]
  - METRORRHAGIA [None]
  - PREMATURE LABOUR [None]
